FAERS Safety Report 21133132 (Version 3)
Quarter: 2022Q3

REPORT INFORMATION
  Report Type: Spontaneous
  Country: US (occurrence: US)
  Receive Date: 20220726
  Receipt Date: 20220920
  Transmission Date: 20221026
  Serious: Yes (Other)
  Sender: FDA-Public Use
  Company Number: US-NOVARTISTESTPH-NVSC2022US168118

PATIENT
  Sex: Female

DRUGS (2)
  1. TAFINLAR [Suspect]
     Active Substance: DABRAFENIB MESYLATE
     Indication: Lung carcinoma cell type unspecified stage 0
     Dosage: 150 MG, Q12H
     Route: 048
     Dates: start: 202206
  2. MEKINIST [Suspect]
     Active Substance: TRAMETINIB DIMETHYL SULFOXIDE
     Indication: Lung carcinoma cell type unspecified stage 0
     Dosage: 2 MG, QD
     Route: 048
     Dates: start: 202206

REACTIONS (8)
  - Pulmonary embolism [Unknown]
  - Delusion [Unknown]
  - Confusional state [Unknown]
  - Diarrhoea [Unknown]
  - Cough [Unknown]
  - Headache [Unknown]
  - Oedema peripheral [Unknown]
  - Rash [Unknown]
